FAERS Safety Report 7866255-6 (Version None)
Quarter: 2011Q4

REPORT INFORMATION
  Report Type: 
  Country: None (occurrence: None)
  Receive Date: 20111028
  Receipt Date: 20110513
  Transmission Date: 20120403
  Serious: No
  Sender: FDA-Public Use
  Company Number: US-GLAXOSMITHKLINE-A0928038A

PATIENT
  Age: 77 Year
  Sex: Female

DRUGS (8)
  1. BROVANA [Suspect]
     Indication: DYSPNOEA
     Route: 055
     Dates: end: 20110425
  2. NASONEX [Suspect]
     Route: 045
  3. ASTEPRO [Suspect]
     Route: 065
  4. ADVAIR DISKUS 100/50 [Suspect]
     Indication: PRODUCT USED FOR UNKNOWN INDICATION
     Route: 055
  5. SPIRIVA [Suspect]
     Route: 055
  6. ALBUTEROL [Suspect]
     Indication: PRODUCT USED FOR UNKNOWN INDICATION
     Route: 055
  7. ALLEGRA [Suspect]
     Indication: MULTIPLE ALLERGIES
     Dosage: 180MG PER DAY
     Route: 048
     Dates: start: 20110401
  8. UNSPECIFIED TREATMENT [Suspect]
     Indication: DYSPNOEA
     Dates: end: 20110425

REACTIONS (5)
  - HEART RATE INCREASED [None]
  - BLOOD PRESSURE INCREASED [None]
  - DYSPEPSIA [None]
  - MALAISE [None]
  - CHEST PAIN [None]
